FAERS Safety Report 8386139-7 (Version None)
Quarter: 2012Q2

REPORT INFORMATION
  Report Type: 
  Country: None (occurrence: None)
  Receive Date: 20120523
  Receipt Date: 20120509
  Transmission Date: 20120825
  Serious: Yes (Death, Hospitalization, Other)
  Sender: FDA-Public Use
  Company Number: 09-AUR-10508

PATIENT
  Age: 62 Year
  Sex: Female

DRUGS (2)
  1. TROGLITAZONE (TROGLITAZONE) [Suspect]
     Indication: PRODUCT USED FOR UNKNOWN INDICATION
     Dosage: 600 MG (6010 MG, 1 D), (400 MG),URETHRAL
     Route: 066
  2. METFORMIN HCL [Suspect]
     Indication: PRODUCT USED FOR UNKNOWN INDICATION

REACTIONS (7)
  - CARDIOMEGALY [None]
  - PULMONARY OEDEMA [None]
  - BLOOD LACTATE DEHYDROGENASE INCREASED [None]
  - PLEURAL EFFUSION [None]
  - ALANINE AMINOTRANSFERASE INCREASED [None]
  - ASPARTATE AMINOTRANSFERASE INCREASED [None]
  - BLOOD LACTIC ACID INCREASED [None]
